FAERS Safety Report 5232657-X (Version None)
Quarter: 2007Q1

REPORT INFORMATION
  Report Type: 
  Country: None (occurrence: None)
  Receive Date: 20070206
  Receipt Date: 20070206
  Transmission Date: 20070707
  Serious: Yes (Life-Threatening, Hospitalization, Other)
  Sender: FDA-Public Use
  Company Number: None

PATIENT
  Age: 37 Year
  Sex: Male
  Weight: 83.9154 kg

DRUGS (4)
  1. CELEBREX [Suspect]
     Indication: BACK PAIN
     Dosage: ONE DAILY PO
     Route: 048
     Dates: start: 20030510, end: 20030704
  2. CELEBREX [Suspect]
     Indication: PAIN IN EXTREMITY
     Dosage: ONE DAILY PO
     Route: 048
     Dates: start: 20030510, end: 20030704
  3. CELEBREX [Suspect]
     Indication: BACK PAIN
     Dosage: ONE DAILY PO
     Route: 048
     Dates: start: 20030510, end: 20030704
  4. CELEBREX [Suspect]
     Indication: PAIN IN EXTREMITY
     Dosage: ONE DAILY PO
     Route: 048
     Dates: start: 20030510, end: 20030704

REACTIONS (3)
  - ABDOMINAL PAIN [None]
  - DYSPEPSIA [None]
  - PULMONARY EMBOLISM [None]
